FAERS Safety Report 4558422-4 (Version None)
Quarter: 2005Q1

REPORT INFORMATION
  Report Type: 
  Country: None (occurrence: None)
  Receive Date: 20050114
  Receipt Date: 20050104
  Transmission Date: 20050727
  Serious: Yes (Hospitalization)
  Sender: FDA-Public Use
  Company Number: 2004-00447

PATIENT
  Age: 71 Year
  Sex: Male

DRUGS (8)
  1. IMMUCYST(BCG - IT (CONNAUGHT)), AVENTIS PASTEUR LTD., C1342AB [Suspect]
     Indication: BLADDER CANCER
     Dosage: (81.0 MG), I. VES., BLADDER
     Dates: start: 20030506, end: 20030902
  2. OFLOCET [Concomitant]
  3. PLACEBO OFLOCET [Concomitant]
  4. BUFLOMEDIL [Concomitant]
  5. AMAREL [Concomitant]
  6. ZOLPIDEM TARTRATE [Concomitant]
  7. PROZAC [Concomitant]
  8. ATHYMIL [Concomitant]

REACTIONS (26)
  - ABSCESS LIMB [None]
  - BETA HAEMOLYTIC STREPTOCOCCAL INFECTION [None]
  - BLOOD CULTURE POSITIVE [None]
  - BLOOD IMMUNOGLOBULIN A [None]
  - C-REACTIVE PROTEIN INCREASED [None]
  - CHRONIC RESPIRATORY FAILURE [None]
  - ESCHERICHIA INFECTION [None]
  - HAEMODIALYSIS [None]
  - HENOCH-SCHONLEIN PURPURA [None]
  - INTERMITTENT CLAUDICATION [None]
  - KLEBSIELLA INFECTION [None]
  - OEDEMA PERIPHERAL [None]
  - PAIN [None]
  - PROTEUS INFECTION [None]
  - PSEUDOMONAS INFECTION [None]
  - PURPURA [None]
  - PURULENT DISCHARGE [None]
  - RENAL FAILURE ACUTE [None]
  - RENAL TUBULAR DISORDER [None]
  - SKIN LESION [None]
  - SKIN NECROSIS [None]
  - SKIN ULCER [None]
  - STAPHYLOCOCCAL INFECTION [None]
  - SUPERINFECTION [None]
  - VASCULAR PURPURA [None]
  - WEIGHT DECREASED [None]
